FAERS Safety Report 9885821 (Version 1)
Quarter: 2014Q1

REPORT INFORMATION
  Report Type: Report from Study
  Country: US (occurrence: US)
  Receive Date: 20140210
  Receipt Date: 20140210
  Transmission Date: 20141002
  Serious: Yes (Hospitalization)
  Sender: FDA-Public Use
  Company Number: US-ASTRAZENECA-2014SE09365

PATIENT
  Age: 21405 Day
  Sex: Male
  Weight: 102 kg

DRUGS (7)
  1. NEXIUM [Suspect]
     Indication: GASTRITIS PROPHYLAXIS
     Route: 048
     Dates: start: 20121120, end: 20140108
  2. CELECOXIB [Suspect]
     Indication: OSTEOARTHRITIS
     Dosage: THREE TIMES A DAY, HIGH DOSE
     Route: 048
     Dates: start: 20121120, end: 20140108
  3. IBUPROFEN CODE NOT BROKEN [Suspect]
     Indication: RHEUMATOID ARTHRITIS
     Dosage: THREE TIMES A DAY, HIGH DOSE
     Route: 048
     Dates: start: 20121120, end: 20140108
  4. ASPIRIN [Concomitant]
     Dates: start: 2008
  5. ALLOPURINOL [Concomitant]
     Indication: GOUT
     Dates: start: 2012
  6. MULTIVITAMIN [Concomitant]
     Indication: VITAMIN SUPPLEMENTATION
     Dates: start: 2006
  7. NAPROXEN CODE NOT BROKEN [Suspect]

REACTIONS (1)
  - Deep vein thrombosis [Recovering/Resolving]
